FAERS Safety Report 8001715-9 (Version None)
Quarter: 2011Q4

REPORT INFORMATION
  Report Type: 
  Country: None (occurrence: None)
  Receive Date: 20111222
  Receipt Date: 20111212
  Transmission Date: 20120403
  Serious: Yes (Hospitalization, Other)
  Sender: FDA-Public Use
  Company Number: US-JNJFOC-20111205811

PATIENT
  Age: 65 Year
  Sex: Female

DRUGS (5)
  1. INVEGA SUSTENNA [Suspect]
     Route: 030
     Dates: start: 20110101, end: 20110101
  2. UNKNOWN MEDICATION [Suspect]
     Indication: SYNCOPE
     Route: 065
  3. INVEGA SUSTENNA [Suspect]
     Indication: SCHIZOAFFECTIVE DISORDER
     Route: 030
     Dates: start: 20111205
  4. INVEGA SUSTENNA [Suspect]
     Route: 030
     Dates: start: 20110101, end: 20110101
  5. INVEGA SUSTENNA [Suspect]
     Route: 030
     Dates: start: 20110101, end: 20110101

REACTIONS (6)
  - PSYCHOTIC DISORDER [None]
  - CONVULSION [None]
  - SYNCOPE [None]
  - INCORRECT DOSE ADMINISTERED [None]
  - FALL [None]
  - DRUG INEFFECTIVE [None]
